FAERS Safety Report 8397078-X (Version None)
Quarter: 2012Q2

REPORT INFORMATION
  Report Type: 
  Country: None (occurrence: None)
  Receive Date: 20120530
  Receipt Date: 20120522
  Transmission Date: 20120825
  Serious: Yes (Death)
  Sender: FDA-Public Use
  Company Number: US-OPTIMER-20120058

PATIENT
  Sex: Male
  Weight: 78 kg

DRUGS (1)
  1. DIFICID [Suspect]
     Indication: CLOSTRIDIUM DIFFICILE COLITIS
     Dosage: 7 DOSES, BID
     Route: 048
     Dates: start: 20120401, end: 20120101

REACTIONS (3)
  - DEATH [None]
  - DYSKINESIA [None]
  - TREMOR [None]
